FAERS Safety Report 14707012 (Version 2)
Quarter: 2018Q2

REPORT INFORMATION
  Report Type: Report from Study
  Country: FR (occurrence: FR)
  Receive Date: 20180403
  Receipt Date: 20180404
  Transmission Date: 20180711
  Serious: Yes (Other)
  Sender: FDA-Public Use
  Company Number: FR-VELOXIS PHARMACEUTICALS-2044956

PATIENT
  Age: 73 Year
  Sex: Female
  Weight: 58 kg

DRUGS (18)
  1. ENVARSUS XR [Suspect]
     Active Substance: TACROLIMUS
     Indication: PROPHYLAXIS AGAINST TRANSPLANT REJECTION
     Route: 048
     Dates: start: 20171128
  2. LASILIX /00032601/ [Concomitant]
     Active Substance: FUROSEMIDE
     Dates: start: 20171127, end: 20171218
  3. ADVAGRAF [Concomitant]
     Active Substance: TACROLIMUS
     Dates: start: 20150826, end: 20150916
  4. ADVAGRAF [Concomitant]
     Active Substance: TACROLIMUS
     Dates: start: 20160218, end: 20160824
  5. UVEDOSE [Concomitant]
     Active Substance: CHOLECALCIFEROL
     Dates: start: 2015
  6. ADVAGRAF [Concomitant]
     Active Substance: TACROLIMUS
     Dates: start: 20151125, end: 20160217
  7. AMIODARONE [Concomitant]
     Active Substance: AMIODARONE
     Dates: start: 201505
  8. LASILIX /00032601/ [Concomitant]
     Active Substance: FUROSEMIDE
     Dates: start: 20171221
  9. ADVAGRAF [Concomitant]
     Active Substance: TACROLIMUS
     Dates: start: 20150916, end: 20151104
  10. ADVAGRAF [Concomitant]
     Active Substance: TACROLIMUS
     Dates: end: 20151125
  11. TAHOR [Concomitant]
     Active Substance: ATORVASTATIN CALCIUM
     Dates: start: 2014
  12. AZANTAC [Concomitant]
     Active Substance: RANITIDINE HYDROCHLORIDE
     Dates: start: 20160824
  13. CORTANCYL [Concomitant]
     Active Substance: PREDNISONE
     Dates: start: 201505
  14. CELLCEPT [Concomitant]
     Active Substance: MYCOPHENOLATE MOFETIL\MYCOPHENOLATE MOFETIL HYDROCHLORIDE
     Dates: start: 20150524
  15. ADVAGRAF [Concomitant]
     Active Substance: TACROLIMUS
     Dates: start: 20160825, end: 20161019
  16. ADVAGRAF [Concomitant]
     Active Substance: TACROLIMUS
     Dates: start: 20161130, end: 20171127
  17. ADVAGRAF [Concomitant]
     Active Substance: TACROLIMUS
     Dates: start: 20150811, end: 20150825
  18. COUMADINE [Concomitant]
     Active Substance: WARFARIN SODIUM
     Dates: start: 201505

REACTIONS (2)
  - Cystitis [Not Recovered/Not Resolved]
  - Renal impairment [Recovering/Resolving]

NARRATIVE: CASE EVENT DATE: 20171218
